FAERS Safety Report 4286576-6 (Version None)
Quarter: 2004Q1

REPORT INFORMATION
  Report Type: 
  Country: None (occurrence: None)
  Receive Date: 20040205
  Receipt Date: 20040122
  Transmission Date: 20041129
  Serious: Yes (Life-Threatening, Hospitalization, Other)
  Sender: FDA-Public Use
  Company Number: 2004S1000220

PATIENT
  Age: 78 Year
  Sex: Female

DRUGS (2)
  1. PROPOXYPHENE NAPSYLATE AND ACETAMINOPHEN TABLETS 100 MG/650MG [Suspect]
     Indication: PAIN
     Dosage: 100 MG/650 MG PRN, ORAL
     Route: 048
     Dates: start: 20040110, end: 20040111
  2. METOPROLOL [Concomitant]

REACTIONS (1)
  - CEREBROVASCULAR ACCIDENT [None]
